FAERS Safety Report 12355909 (Version 1)
Quarter: 2016Q2

REPORT INFORMATION
  Report Type: Spontaneous
  Country: CA (occurrence: CA)
  Receive Date: 20160511
  Receipt Date: 20160511
  Transmission Date: 20160815
  Serious: Yes (Other)
  Sender: FDA-Public Use
  Company Number: CA-BAYER-2016-089650

PATIENT
  Age: 42 Year
  Sex: Female

DRUGS (2)
  1. MIRENA [Suspect]
     Active Substance: LEVONORGESTREL
     Indication: DYSMENORRHOEA
  2. MIRENA [Suspect]
     Active Substance: LEVONORGESTREL
     Indication: MENORRHAGIA
     Dosage: 20 MCG/24HR, CONT
     Route: 015
     Dates: start: 201312, end: 201404

REACTIONS (10)
  - Complication of device removal [None]
  - Hysterectomy [None]
  - Abdominal pain lower [None]
  - Uterine perforation [None]
  - Uterine dilation and curettage [None]
  - Thrombosis [None]
  - Device breakage [None]
  - Device expulsion [None]
  - Device difficult to use [None]
  - Vaginal haemorrhage [None]

NARRATIVE: CASE EVENT DATE: 2014
